FAERS Safety Report 9694798 (Version 1)
Quarter: 2013Q4

REPORT INFORMATION
  Report Type: Report from Study
  Country: US (occurrence: US)
  Receive Date: 20131119
  Receipt Date: 20131119
  Transmission Date: 20140711
  Serious: Yes (Other)
  Sender: FDA-Public Use
  Company Number: US-ROCHE-1304559

PATIENT
  Sex: Male

DRUGS (2)
  1. LUCENTIS [Suspect]
     Indication: AGE-RELATED MACULAR DEGENERATION
     Dosage: 7 INJECTIONS IN RIGHT EYE/4 INJECTIONS IN LEFT EYE
     Route: 065
  2. TRICOR (FENOFIBRATE) [Concomitant]

REACTIONS (5)
  - Blindness [Unknown]
  - Drug ineffective [Unknown]
  - Hypoacusis [Unknown]
  - Visual acuity reduced [Unknown]
  - Therapeutic response decreased [Unknown]
